FAERS Safety Report 6097972-9 (Version None)
Quarter: 2009Q1

REPORT INFORMATION
  Report Type: 
  Country: None (occurrence: None)
  Receive Date: 20090227
  Receipt Date: 20090210
  Transmission Date: 20090719
  Serious: Yes (Other)
  Sender: FDA-Public Use
  Company Number: DE-ASTRAZENECA-2009PK00569

PATIENT
  Sex: Female

DRUGS (1)
  1. BELOC ZOK [Suspect]
     Indication: HYPERTONIA
     Route: 048

REACTIONS (1)
  - ENDOMETRIAL HYPERPLASIA [None]
